FAERS Safety Report 18427861 (Version 2)
Quarter: 2020Q4

REPORT INFORMATION
  Report Type: Spontaneous
  Country: JP (occurrence: JP)
  Receive Date: 20201026
  Receipt Date: 20201028
  Transmission Date: 20210114
  Serious: Yes (Death, Other)
  Sender: FDA-Public Use
  Company Number: JP-PFIZER INC-2020413920

PATIENT
  Age: 52 Year

DRUGS (2)
  1. INLYTA [Suspect]
     Active Substance: AXITINIB
     Dosage: 5 MG, 2X/DAY
     Dates: start: 202009
  2. KEYTRUDA [Suspect]
     Active Substance: PEMBROLIZUMAB
     Dosage: UNK
     Dates: start: 202009

REACTIONS (4)
  - Malaise [Unknown]
  - Renal failure [Unknown]
  - Death [Fatal]
  - Hepatic failure [Unknown]

NARRATIVE: CASE EVENT DATE: 20201021
